FAERS Safety Report 17751518 (Version 2)
Quarter: 2021Q2

REPORT INFORMATION
  Report Type: Spontaneous
  Country: US (occurrence: US)
  Receive Date: 20200506
  Receipt Date: 20210601
  Transmission Date: 20210716
  Serious: Yes (Death, Hospitalization, Other)
  Sender: FDA-Public Use
  Company Number: US-ASTRAZENECA-2020SE58881

PATIENT
  Age: 20410 Day
  Sex: Male
  Weight: 133.4 kg

DRUGS (48)
  1. PRILOSEC OTC [Suspect]
     Active Substance: OMEPRAZOLE MAGNESIUM
     Indication: GASTROOESOPHAGEAL REFLUX DISEASE
     Route: 048
     Dates: start: 2006, end: 2016
  2. PROTONIX [Suspect]
     Active Substance: PANTOPRAZOLE SODIUM
     Indication: GASTROOESOPHAGEAL REFLUX DISEASE
     Route: 065
     Dates: start: 200601, end: 201609
  3. ALBUTEROL. [Concomitant]
     Active Substance: ALBUTEROL
     Indication: ASTHMA
     Dates: start: 200611, end: 201712
  4. SILDENAFIL CITRATE. [Concomitant]
     Active Substance: SILDENAFIL CITRATE
     Indication: ERECTILE DYSFUNCTION
     Dates: start: 200611, end: 201712
  5. CLOPIDOGREL [Concomitant]
     Active Substance: CLOPIDOGREL BISULFATE
     Indication: CEREBROVASCULAR ACCIDENT
     Dates: start: 200611, end: 201712
  6. ASPIRIN. [Concomitant]
     Active Substance: ASPIRIN
     Indication: CARDIAC DISORDER
     Dates: start: 200611, end: 201712
  7. MAGNESIUM [Concomitant]
     Active Substance: MAGNESIUM
     Indication: MUSCLE SPASMS
     Dates: start: 200611, end: 201712
  8. POTASSIUM CHLORIDE. [Concomitant]
     Active Substance: POTASSIUM CHLORIDE
  9. PRILOSEC [Suspect]
     Active Substance: OMEPRAZOLE MAGNESIUM
     Indication: GASTROOESOPHAGEAL REFLUX DISEASE
     Dosage: GENERIC
     Route: 065
     Dates: end: 2016
  10. CIMETIDINE [Concomitant]
     Active Substance: CIMETIDINE
  11. PEPTO?BISMOL [Concomitant]
     Active Substance: BISMUTH SUBSALICYLATE
     Dosage: AS DIRECTED ON PACKAGE
     Dates: start: 200401, end: 200601
  12. VITAMIN D2 [Concomitant]
     Active Substance: ERGOCALCIFEROL
  13. FUROSEMIDE. [Concomitant]
     Active Substance: FUROSEMIDE
  14. ISOSORBIDE MONONITRATE. [Concomitant]
     Active Substance: ISOSORBIDE MONONITRATE
  15. SIMVASTATIN. [Concomitant]
     Active Substance: SIMVASTATIN
  16. LISINOPRIL. [Concomitant]
     Active Substance: LISINOPRIL
  17. DOCUSATE [Concomitant]
     Active Substance: DOCUSATE
  18. BUMETANIDE. [Concomitant]
     Active Substance: BUMETANIDE
  19. PRILOSEC OTC [Suspect]
     Active Substance: OMEPRAZOLE MAGNESIUM
     Indication: GASTROOESOPHAGEAL REFLUX DISEASE
     Route: 048
     Dates: start: 200601, end: 201609
  20. LEVOTHYROXINE. [Concomitant]
     Active Substance: LEVOTHYROXINE
     Indication: THYROID DISORDER
     Dates: start: 200611, end: 201712
  21. TIOTROPIUM [Concomitant]
     Active Substance: TIOTROPIUM
     Indication: CHRONIC OBSTRUCTIVE PULMONARY DISEASE
     Dates: start: 200611, end: 201712
  22. CALCITRIOL. [Concomitant]
     Active Substance: CALCITRIOL
  23. ALBUTEROL. [Concomitant]
     Active Substance: ALBUTEROL
     Indication: CHRONIC OBSTRUCTIVE PULMONARY DISEASE
     Dates: start: 200611, end: 201712
  24. AMLODIPINE [Concomitant]
     Active Substance: AMLODIPINE BESYLATE
     Indication: ANGINA PECTORIS
     Dates: start: 200611, end: 201712
  25. TYLENOL [Concomitant]
     Active Substance: ACETAMINOPHEN
     Indication: PAIN
     Dates: start: 200611, end: 201712
  26. TUMS [Concomitant]
     Active Substance: CALCIUM CARBONATE
     Dosage: AS DIRECTED ON PACKAGE
     Dates: start: 200401, end: 200601
  27. NITROGLYCERIN. [Concomitant]
     Active Substance: NITROGLYCERIN
  28. METOLAZONE. [Concomitant]
     Active Substance: METOLAZONE
  29. PROTONIX [Suspect]
     Active Substance: PANTOPRAZOLE SODIUM
     Indication: GASTROOESOPHAGEAL REFLUX DISEASE
     Dosage: GENERIC
     Route: 065
     Dates: end: 2016
  30. TUMS [Concomitant]
     Active Substance: CALCIUM CARBONATE
     Dosage: AS NEEDED
     Dates: start: 200601, end: 201712
  31. LACTULOSE. [Concomitant]
     Active Substance: LACTULOSE
  32. MAGNESIUM OXIDE. [Concomitant]
     Active Substance: MAGNESIUM OXIDE
  33. SULFAMETHOXAZOLE [Concomitant]
     Active Substance: SULFAMETHOXAZOLE
  34. ACETAMINOPHEN. [Concomitant]
     Active Substance: ACETAMINOPHEN
  35. TRAZODONE [Concomitant]
     Active Substance: TRAZODONE HYDROCHLORIDE
  36. PRILOSEC [Suspect]
     Active Substance: OMEPRAZOLE MAGNESIUM
     Indication: GASTROOESOPHAGEAL REFLUX DISEASE
     Route: 048
     Dates: start: 200601, end: 201609
  37. PRILOSEC [Suspect]
     Active Substance: OMEPRAZOLE MAGNESIUM
     Indication: GASTROOESOPHAGEAL REFLUX DISEASE
     Route: 048
     Dates: start: 2006, end: 2016
  38. ALLOPURINOL. [Concomitant]
     Active Substance: ALLOPURINOL
     Indication: NEPHROLITHIASIS
     Dates: start: 200611, end: 201712
  39. PLAVIX [Concomitant]
     Active Substance: CLOPIDOGREL BISULFATE
     Indication: CORONARY ARTERY DISEASE
     Dates: start: 200611, end: 201712
  40. DEXTROSE. [Concomitant]
     Active Substance: DEXTROSE
  41. PROTONIX [Suspect]
     Active Substance: PANTOPRAZOLE SODIUM
     Indication: GASTROOESOPHAGEAL REFLUX DISEASE
     Route: 065
     Dates: start: 2006, end: 2016
  42. CARVEDILOL. [Concomitant]
     Active Substance: CARVEDILOL
     Indication: HYPERTENSION
     Dates: start: 200611, end: 201712
  43. RANITIDINE. [Concomitant]
     Active Substance: RANITIDINE
     Indication: GASTROOESOPHAGEAL REFLUX DISEASE
     Dates: start: 201510, end: 201712
  44. POTASSIUM [Concomitant]
     Active Substance: POTASSIUM
     Indication: MUSCLE SPASMS
     Dates: start: 200611, end: 201712
  45. IBUPROFEN. [Concomitant]
     Active Substance: IBUPROFEN
  46. BUDESONIDE. [Concomitant]
     Active Substance: BUDESONIDE
  47. INSULIN [Concomitant]
     Active Substance: INSULIN NOS
  48. BISACODYL. [Concomitant]
     Active Substance: BISACODYL

REACTIONS (6)
  - Acute kidney injury [Unknown]
  - Renal failure [Unknown]
  - Cardiac failure congestive [Fatal]
  - Chronic kidney disease [Unknown]
  - End stage renal disease [Fatal]
  - Nephrogenic anaemia [Unknown]

NARRATIVE: CASE EVENT DATE: 20140424
